FAERS Safety Report 6424060-1 (Version None)
Quarter: 2009Q4

REPORT INFORMATION
  Report Type: 
  Country: None (occurrence: None)
  Receive Date: 20091102
  Receipt Date: 20091021
  Transmission Date: 20100525
  Serious: Yes (Hospitalization)
  Sender: FDA-Public Use
  Company Number: US-WYE-H11734109

PATIENT
  Sex: Female

DRUGS (3)
  1. ARTANE [Suspect]
     Dosage: UNKNOWN
  2. SEROQUEL [Concomitant]
  3. RISPERIDONE [Suspect]
     Dosage: UNKNOWN

REACTIONS (1)
  - DRUG INEFFECTIVE [None]
